FAERS Safety Report 5472811-5 (Version None)
Quarter: 2007Q4

REPORT INFORMATION
  Report Type: 
  Country: None (occurrence: None)
  Receive Date: 20071001
  Receipt Date: 20061230
  Transmission Date: 20080405
  Serious: No
  Sender: FDA-Public Use
  Company Number: US-ASTRAZENECA-2007UW00063

PATIENT
  Age: 68 Year
  Sex: Female
  Weight: 60.8 kg

DRUGS (3)
  1. ARIMIDEX [Suspect]
     Indication: BREAST CANCER
     Route: 048
     Dates: start: 20050615
  2. ASPIRIN [Concomitant]
  3. NEXIUM [Concomitant]

REACTIONS (6)
  - ALOPECIA [None]
  - HAIR DISORDER [None]
  - HOT FLUSH [None]
  - INCREASED APPETITE [None]
  - NIGHT SWEATS [None]
  - WEIGHT INCREASED [None]
